FAERS Safety Report 19841941 (Version 1)
Quarter: 2021Q3

REPORT INFORMATION
  Report Type: Spontaneous
  Country: SE (occurrence: SE)
  Receive Date: 20210915
  Receipt Date: 20210915
  Transmission Date: 20211014
  Serious: Yes (Death, Hospitalization)
  Sender: FDA-Public Use
  Company Number: SE-TAKEDA-2021TEU007827

PATIENT
  Age: 37 Year
  Sex: Female

DRUGS (33)
  1. TOUJEO DOUBLESTAR [Concomitant]
     Active Substance: INSULIN GLARGINE
     Dosage: 2 INTERNATIONAL UNIT, QD
     Dates: start: 20210802
  2. ALVEDON [Concomitant]
     Active Substance: ACETAMINOPHEN
     Dosage: 3000 MILLIGRAM, QD
     Dates: start: 20210726
  3. LANSOPRAZOL TEVA [Concomitant]
     Dosage: 120 MILLIGRAM, QD
     Dates: start: 20210512
  4. ARITAVI [Concomitant]
     Active Substance: DULOXETINE HYDROCHLORIDE
     Dosage: 120 MILLIGRAM, QD
     Dates: start: 20210727
  5. ONDANSETRON BLUEFISH [Concomitant]
     Dosage: UNK
     Dates: start: 20201206
  6. FURIX [Concomitant]
     Dosage: UNK UNK, QD
     Dates: start: 20210802
  7. PROPAVAN [Concomitant]
     Active Substance: PROPIOMAZINE
     Dosage: 50 MILLIGRAM, QD
     Dates: start: 20201103
  8. SUMATRIPTAN MYLAN [Concomitant]
     Active Substance: SUMATRIPTAN
     Dosage: UNK UNK, BID
     Dates: start: 20210318
  9. DOXAZOSIN [Concomitant]
     Active Substance: DOXAZOSIN MESYLATE
     Dosage: 4 MILLIGRAM, QD
     Dates: start: 20210422
  10. ALFACALCIDOL ORIFARM [Concomitant]
     Dosage: 0.5 MICROGRAM, QD
     Dates: start: 20201127
  11. OXASCAND [Concomitant]
     Active Substance: OXAZEPAM
     Dosage: 5 MILLIGRAM, QD
     Dates: start: 20201217
  12. LAKRIMONT [Concomitant]
     Dosage: UNK
     Dates: start: 20210318
  13. HALDOL [Concomitant]
     Active Substance: HALOPERIDOL
     Dosage: 2 MILLIGRAM, QD
     Dates: start: 20210729
  14. CARVEDILOL EBB [Concomitant]
     Dosage: 50 MILLIGRAM, QD
     Dates: start: 20210512
  15. SODIUM HYDROGEN CARBONATE [Concomitant]
     Active Substance: SODIUM BICARBONATE
     Dosage: 2 GRAM, QD
     Dates: start: 20201104
  16. GLUSTIN [Suspect]
     Active Substance: PIOGLITAZONE HYDROCHLORIDE
     Indication: TYPE 2 DIABETES MELLITUS
     Dosage: 30 MILLIGRAM, QD
     Route: 065
     Dates: start: 20210604, end: 202108
  17. ZOLPIDEM [Concomitant]
     Active Substance: ZOLPIDEM TARTRATE
     Dosage: 10 MILLIGRAM, QD
     Dates: start: 20210729
  18. FRAGMIN [Concomitant]
     Active Substance: DALTEPARIN SODIUM
     Dosage: 7500 INTERNATIONAL UNIT, QD
  19. QUETIAPIN SANDOZ [Concomitant]
     Active Substance: QUETIAPINE
     Dosage: 100 MILLIGRAM, QD
     Dates: start: 20210729
  20. EPORATIO [Concomitant]
     Active Substance: ERYTHROPOIETIN
     Dosage: 5000 INTERNATIONAL UNIT, Q4WEEKS
     Dates: start: 20210419
  21. KALCIPOS [Concomitant]
     Active Substance: CALCIUM CARBONATE
     Dosage: 1000 MILLIGRAM, QD
     Dates: start: 20210617
  22. FOSRENOL [Concomitant]
     Active Substance: LANTHANUM CARBONATE
     Dosage: UNK
     Dates: start: 20210420
  23. DIVISUN [Concomitant]
     Active Substance: CHOLECALCIFEROL
     Dosage: 2000 INTERNATIONAL UNIT, QD
     Dates: start: 20210527
  24. OXYCODONE DEPOT ORION [Concomitant]
     Dosage: 20 MILLIGRAM, QD
     Dates: start: 20201108
  25. AMLODIPIN SANDOZ [Concomitant]
     Dosage: 10 MILLIGRAM, QD
     Dates: start: 20210812
  26. PRIMPERAN [Concomitant]
     Active Substance: METOCLOPRAMIDE HYDROCHLORIDE
     Dosage: UNK
     Dates: start: 20210726
  27. MOVICOL PLAIN [Concomitant]
     Active Substance: POLYETHYLENE GLYCOL 3350\POTASSIUM CHLORIDE\SODIUM BICARBONATE\SODIUM CHLORIDE
     Dosage: UNK
     Dates: start: 20210802
  28. FURIX [Concomitant]
     Dosage: UNK
     Dates: start: 20210419
  29. VICTOZA [Concomitant]
     Active Substance: LIRAGLUTIDE
     Dosage: 3 MILLIGRAM, QD
     Route: 058
     Dates: start: 20210715
  30. TAVEGYL [Concomitant]
     Active Substance: CLEMASTINE FUMARATE
     Dosage: 1 MILLIGRAM
     Dates: start: 20210311
  31. LORATADIN ORIFARM [Concomitant]
     Dosage: UNK
     Dates: start: 20210414
  32. CILAXORAL [Concomitant]
     Active Substance: SODIUM PICOSULFATE
     Dosage: UNK
     Dates: start: 20210608
  33. STESOLID [Concomitant]
     Active Substance: DIAZEPAM
     Dosage: 10 MILLIGRAM, QD
     Dates: start: 20201119

REACTIONS (2)
  - Pericardial effusion [Fatal]
  - Pleural effusion [Fatal]

NARRATIVE: CASE EVENT DATE: 202108
